FAERS Safety Report 16455878 (Version 3)
Quarter: 2019Q3

REPORT INFORMATION
  Report Type: Report from Study
  Country: None (occurrence: US)
  Receive Date: 20190619
  Receipt Date: 20190821
  Transmission Date: 20191004
  Serious: Yes (Hospitalization, Other)
  Sender: FDA-Public Use
  Company Number: US-ABBVIE-19K-163-2819453-00

PATIENT
  Age: 29 Year
  Sex: Male
  Weight: 118.49 kg

DRUGS (2)
  1. DILAUDID [Concomitant]
     Active Substance: HYDROMORPHONE HYDROCHLORIDE
     Indication: PAIN
  2. HUMIRA [Suspect]
     Active Substance: ADALIMUMAB
     Indication: CROHN^S DISEASE
     Route: 058
     Dates: start: 2018, end: 201904

REACTIONS (9)
  - Gastrointestinal procedural complication [Recovered/Resolved with Sequelae]
  - Gastrointestinal fistula [Not Recovered/Not Resolved]
  - Scar [Recovered/Resolved with Sequelae]
  - Gastrointestinal disorder [Not Recovered/Not Resolved]
  - Post procedural complication [Not Recovered/Not Resolved]
  - Renal haematoma [Recovering/Resolving]
  - Weight decreased [Not Recovered/Not Resolved]
  - Crohn^s disease [Unknown]
  - Intestinal resection [Recovered/Resolved with Sequelae]

NARRATIVE: CASE EVENT DATE: 2019
